FAERS Safety Report 5517097-8 (Version None)
Quarter: 2007Q4

REPORT INFORMATION
  Report Type: 
  Country: None (occurrence: None)
  Receive Date: 20071114
  Receipt Date: 20070815
  Transmission Date: 20080405
  Serious: No
  Sender: FDA-Public Use
  Company Number: A0670057A

PATIENT
  Age: 50 Year
  Sex: Female

DRUGS (3)
  1. COMMIT [Suspect]
  2. COMMIT [Suspect]
  3. COMMIT [Suspect]

REACTIONS (1)
  - INTENTIONAL DRUG MISUSE [None]
